FAERS Safety Report 9174692 (Version 1)
Quarter: 2013Q1

REPORT INFORMATION
  Report Type: Spontaneous
  Country: US (occurrence: US)
  Receive Date: 20130320
  Receipt Date: 20130320
  Transmission Date: 20140127
  Serious: No
  Sender: FDA-Public Use
  Company Number: US-009507513-1303USA002960

PATIENT
  Sex: Female

DRUGS (4)
  1. RIBAVIRIN [Suspect]
     Indication: CHRONIC HEPATITIS C
     Dosage: 1000 MG, QD
     Dates: start: 20110922
  2. RIBAVIRIN [Suspect]
     Dosage: 800 MG, QD
     Dates: end: 20120404
  3. VICTRELIS [Suspect]
     Dosage: 3 DF, QD
     Dates: start: 20111020, end: 20120404
  4. PEGINTERFERON ALFA-2A [Suspect]
     Indication: CHRONIC HEPATITIS C
     Dosage: 180 MICROGRAM, QW
     Dates: start: 20110922, end: 20120404

REACTIONS (9)
  - Urinary incontinence [Unknown]
  - Abdominal pain [Unknown]
  - Injection site irritation [Unknown]
  - Tongue ulceration [Unknown]
  - Swollen tongue [Unknown]
  - Pruritus [Unknown]
  - Alopecia [Not Recovered/Not Resolved]
  - Abdominal distension [Unknown]
  - Palpitations [Unknown]
